FAERS Safety Report 10753197 (Version 1)
Quarter: 2015Q1

REPORT INFORMATION
  Report Type: Spontaneous
  Country: US (occurrence: US)
  Receive Date: 20150130
  Receipt Date: 20150130
  Transmission Date: 20150721
  Serious: Yes (Hospitalization)
  Sender: FDA-Public Use
  Company Number: US-ABBVIE-15P-163-1339335-00

PATIENT
  Age: 57 Year
  Sex: Male

DRUGS (2)
  1. FORTESTA [Suspect]
     Active Substance: TESTOSTERONE
     Indication: BLOOD TESTOSTERONE DECREASED
     Route: 065
  2. ANDROGEL [Suspect]
     Active Substance: TESTOSTERONE
     Indication: BLOOD TESTOSTERONE DECREASED
     Route: 061

REACTIONS (8)
  - Chest pain [Unknown]
  - Injury [Unknown]
  - Tension [Unknown]
  - Emotional distress [Unknown]
  - Peripheral vascular disorder [Unknown]
  - Pain [Unknown]
  - Troponin increased [Unknown]
  - Economic problem [Unknown]

NARRATIVE: CASE EVENT DATE: 201212
